FAERS Safety Report 8047774-9 (Version None)
Quarter: 2012Q1

REPORT INFORMATION
  Report Type: 
  Country: None (occurrence: None)
  Receive Date: 20120116
  Receipt Date: 20120109
  Transmission Date: 20120608
  Serious: Yes (Other)
  Sender: FDA-Public Use
  Company Number: US-ABBOTT-12P-163-0891183-00

PATIENT
  Sex: Female
  Weight: 48.578 kg

DRUGS (3)
  1. HUMIRA [Suspect]
     Indication: ANKYLOSING SPONDYLITIS
     Dates: start: 20050101
  2. UNKNOWN PAIN MEDS (NON-ABBOTT) [Suspect]
     Indication: INTESTINAL STENOSIS
     Dates: start: 20100101, end: 20100101
  3. HUMIRA [Suspect]
     Indication: CROHN'S DISEASE

REACTIONS (7)
  - DYSSTASIA [None]
  - DIZZINESS [None]
  - DIARRHOEA [None]
  - MUSCLE TIGHTNESS [None]
  - SINUSITIS [None]
  - INTESTINAL STENOSIS [None]
  - INJECTION SITE PAIN [None]
